FAERS Safety Report 21877772 (Version 3)
Quarter: 2023Q1

REPORT INFORMATION
  Report Type: Other
  Country: EG (occurrence: EG)
  Receive Date: 20230118
  Receipt Date: 20230223
  Transmission Date: 20230418
  Serious: Yes (Other)
  Sender: FDA-Public Use
  Company Number: EG-002147023-NVSC2022EG120219

PATIENT
  Age: 41 Year
  Sex: Female

DRUGS (6)
  1. XOLAIR [Suspect]
     Active Substance: OMALIZUMAB
     Indication: Urticaria
     Dosage: 300 MG, QMO (STARTED 6 YEARS AGO)
     Route: 058
  2. XOLAIR [Suspect]
     Active Substance: OMALIZUMAB
     Dosage: 2 DOSAGE FORM, QMO (STARTED 5 YEARS AGO)
     Route: 058
  3. XOLAIR [Suspect]
     Active Substance: OMALIZUMAB
     Dosage: 150 MG
     Route: 058
  4. XOLAIR [Suspect]
     Active Substance: OMALIZUMAB
     Dosage: 1 DOSAGE FORM (150 MG) (EVERY 21 DAYS AND WOULD INCREASE  TO EVERY MONTH ACCORDING TO HER BODY RESPO
     Route: 058
  5. NEXIUM [Concomitant]
     Active Substance: ESOMEPRAZOLE MAGNESIUM
     Indication: Gastrooesophageal reflux disease
     Dosage: 1 DOSAGE FORM, QD (IN THE MORNING) (START DATE: 2 YEARS AGO)
     Route: 065
  6. EBASTINE [Concomitant]
     Active Substance: EBASTINE
     Indication: Hypersensitivity
     Dosage: 1 DOSAGE FORM, BID (IN THE MORNING AND ONE IN THE EVENING) (START DATE: 6 YEARS AGO)
     Route: 065

REACTIONS (9)
  - Hypotension [Recovering/Resolving]
  - Inappropriate schedule of product administration [Unknown]
  - Drug ineffective [Unknown]
  - Condition aggravated [Unknown]
  - Injection site discomfort [Unknown]
  - Anaemia [Unknown]
  - Bone pain [Unknown]
  - Illness [Unknown]
  - Product quality issue [Unknown]

NARRATIVE: CASE EVENT DATE: 20221101
